FAERS Safety Report 14584117 (Version 2)
Quarter: 2018Q1

REPORT INFORMATION
  Report Type: Spontaneous
  Country: US (occurrence: US)
  Receive Date: 20180228
  Receipt Date: 20180308
  Transmission Date: 20180509
  Serious: No
  Sender: FDA-Public Use
  Company Number: US-VIFOR (INTERNATIONAL) INC.-VIT-2018-02069

PATIENT
  Age: 61 Year
  Sex: Male

DRUGS (12)
  1. TAMSULOSIN HYDROCHLORIDE. [Concomitant]
     Active Substance: TAMSULOSIN HYDROCHLORIDE
  2. VELTASSA [Suspect]
     Active Substance: PATIROMER
     Indication: HYPERKALAEMIA
     Route: 048
     Dates: start: 20180123
  3. BASAGLAR [Concomitant]
     Active Substance: INSULIN GLARGINE
  4. ACETYLSALICYLIC ACID [Concomitant]
     Active Substance: ASPIRIN
  5. CETIRIZINE HYDROCHLORIDE. [Concomitant]
     Active Substance: CETIRIZINE HYDROCHLORIDE
  6. ATENOLOL. [Concomitant]
     Active Substance: ATENOLOL
  7. SODIUM POLYSTYRENE SULFONATE. [Concomitant]
     Active Substance: SODIUM POLYSTYRENE SULFONATE
  8. MAGNESIUM [Concomitant]
     Active Substance: MAGNESIUM
  9. FUROSEMIDE. [Concomitant]
     Active Substance: FUROSEMIDE
  10. LOVASTATIN. [Concomitant]
     Active Substance: LOVASTATIN
  11. COLECALCIFEROL [Concomitant]
     Active Substance: CHOLECALCIFEROL
  12. HUMALOG KWIKPEN [Concomitant]
     Active Substance: INSULIN LISPRO

REACTIONS (2)
  - Flatulence [Unknown]
  - Drug dose omission [Unknown]

NARRATIVE: CASE EVENT DATE: 201802
